FAERS Safety Report 21095714 (Version 8)
Quarter: 2022Q3

REPORT INFORMATION
  Report Type: Report from Study
  Country: CN (occurrence: None)
  Receive Date: 20220718
  Receipt Date: 20220921
  Transmission Date: 20221026
  Serious: Yes (Hospitalization)
  Sender: FDA-Public Use
  Company Number: CN-Eisai Medical Research-EC-2022-119292

PATIENT
  Age: 43 Year
  Sex: Male
  Weight: 71.2 kg

DRUGS (20)
  1. LENVATINIB [Suspect]
     Active Substance: LENVATINIB
     Indication: Colorectal cancer metastatic
     Dosage: STARTING DOSE AT 20 MG, FLUCTUATED DOSAGE.
     Route: 048
     Dates: start: 20211022, end: 20220704
  2. LENVATINIB [Suspect]
     Active Substance: LENVATINIB
     Route: 048
     Dates: start: 20220705, end: 20220705
  3. PEMBROLIZUMAB [Suspect]
     Active Substance: PEMBROLIZUMAB
     Indication: Colorectal cancer metastatic
     Route: 041
     Dates: start: 20211022, end: 20220701
  4. BICYCLOL [Concomitant]
     Active Substance: BICYCLOL
     Dates: start: 20220620, end: 20220703
  5. AMOXICILLIN [Concomitant]
     Active Substance: AMOXICILLIN
     Dates: start: 20220622, end: 20220625
  6. OMEPRAZOLE [Concomitant]
     Active Substance: OMEPRAZOLE
     Dates: start: 20220622, end: 20220624
  7. LEVOTHYROXINE SODIUM [Concomitant]
     Active Substance: LEVOTHYROXINE SODIUM
     Dates: start: 20220114
  8. PHOSPHOLIPID [Concomitant]
     Active Substance: PHOSPHOLIPID
     Dates: start: 20220620, end: 20220708
  9. HYDROCHLOROTHIAZIDE\IRBESARTAN [Concomitant]
     Active Substance: HYDROCHLOROTHIAZIDE\IRBESARTAN
     Dates: start: 20220511
  10. RABEPRAZOLE SODIUM [Concomitant]
     Active Substance: RABEPRAZOLE SODIUM
     Dates: start: 20220625, end: 20220630
  11. SUCRALFATE [Concomitant]
     Active Substance: SUCRALFATE
     Route: 048
     Dates: start: 20220625, end: 20220630
  12. CIMETIDINE [Concomitant]
     Active Substance: CIMETIDINE
     Route: 042
     Dates: start: 20220628, end: 20220629
  13. CEFTRIAXONE SODIUM [Concomitant]
     Active Substance: CEFTRIAXONE SODIUM
     Route: 042
     Dates: start: 20220628, end: 20220629
  14. DEXTROSE [Concomitant]
     Active Substance: DEXTROSE
     Route: 042
     Dates: start: 20220628, end: 20220629
  15. OMEPRAZOLE SODIUM [Concomitant]
     Active Substance: OMEPRAZOLE SODIUM
     Route: 042
     Dates: start: 20220628, end: 20220629
  16. HYDROTALCITE [Concomitant]
     Active Substance: HYDROTALCITE
     Dates: start: 20220701, end: 20220708
  17. MOSAPRIDE [Concomitant]
     Active Substance: MOSAPRIDE
     Dates: start: 20220701, end: 20220708
  18. ILAPRAZOLE [Concomitant]
     Active Substance: ILAPRAZOLE
     Dates: start: 20220701, end: 20220708
  19. CELECOXIB [Concomitant]
     Active Substance: CELECOXIB
     Dates: start: 20220701, end: 20220705
  20. UREA [Concomitant]
     Active Substance: UREA
     Dates: start: 20211119, end: 20220620

REACTIONS (1)
  - Flatulence [Recovered/Resolved]

NARRATIVE: CASE EVENT DATE: 20220704
